FAERS Safety Report 4727576-9 (Version None)
Quarter: 2005Q3

REPORT INFORMATION
  Report Type: 
  Country: None (occurrence: None)
  Receive Date: 20050727
  Receipt Date: 20050727
  Transmission Date: 20060218
  Serious: Yes (Other)
  Sender: FDA-Public Use
  Company Number: None

PATIENT
  Age: 89 Year
  Sex: Female
  Weight: 80.7403 kg

DRUGS (1)
  1. PRILOSEC [Suspect]
     Indication: PERIPHERAL VASCULAR DISORDER
     Dosage: 20 MG PO QD
     Route: 048

REACTIONS (1)
  - PAIN [None]
